FAERS Safety Report 19087290 (Version 4)
Quarter: 2022Q2

REPORT INFORMATION
  Report Type: Report from Study
  Country: UG (occurrence: UG)
  Receive Date: 20210402
  Receipt Date: 20220606
  Transmission Date: 20220721
  Serious: Yes (Hospitalization, Other)
  Sender: FDA-Public Use
  Company Number: UG-CIPLA LTD.-2021UG02480

PATIENT

DRUGS (3)
  1. LOPINAVIR\RITONAVIR [Suspect]
     Active Substance: LOPINAVIR\RITONAVIR
     Indication: HIV infection
     Dosage: 2 (80MG/20MG) DOSAGE FORM, BID
     Route: 048
     Dates: start: 20170808, end: 20170911
  2. ABACAVIR\LAMIVUDINE [Suspect]
     Active Substance: ABACAVIR\LAMIVUDINE
     Indication: HIV infection
     Dosage: 1 (60MG/30MG ) DOSAGE FORM, BID
     Route: 048
     Dates: start: 20170808, end: 20170911
  3. SULFAMETHOXAZOLE\TRIMETHOPRIM [Concomitant]
     Active Substance: SULFAMETHOXAZOLE\TRIMETHOPRIM
     Indication: Prophylaxis
     Dosage: 240 MILLIGRAM, QD
     Route: 065
     Dates: start: 20170808

REACTIONS (5)
  - Pneumonia [Recovered/Resolved]
  - Respiratory tract infection [Recovered/Resolved]
  - Oral candidiasis [Recovered/Resolved]
  - Nasal congestion [Recovered/Resolved]
  - Diarrhoea [Recovered/Resolved]

NARRATIVE: CASE EVENT DATE: 20170101
